FAERS Safety Report 15516983 (Version 1)
Quarter: 2018Q4

REPORT INFORMATION
  Report Type: Spontaneous
  Country: US (occurrence: US)
  Receive Date: 20181017
  Receipt Date: 20181017
  Transmission Date: 20190205
  Serious: Yes (Other)
  Sender: FDA-Public Use
  Company Number: PHEH2018US043393

PATIENT
  Sex: Female

DRUGS (2)
  1. GLUCOSAMINE [Concomitant]
     Active Substance: GLUCOSAMINE
     Indication: PRODUCT USED FOR UNKNOWN INDICATION
     Dosage: UNK UNK, PRN
     Route: 065
  2. JADENU [Suspect]
     Active Substance: DEFERASIROX
     Indication: IRON OVERLOAD
     Dosage: 360 MG, BID
     Route: 048

REACTIONS (3)
  - Rash generalised [Not Recovered/Not Resolved]
  - Pruritus [Recovering/Resolving]
  - Swelling face [Recovering/Resolving]
